FAERS Safety Report 16983072 (Version 1)
Quarter: 2019Q4

REPORT INFORMATION
  Report Type: Spontaneous
  Country: US (occurrence: US)
  Receive Date: 20191030
  Receipt Date: 20191030
  Transmission Date: 20200122
  Serious: No
  Sender: FDA-Public Use
  Company Number: None

PATIENT
  Age: 27 Year
  Sex: Female
  Weight: 54 kg

DRUGS (2)
  1. OMEPRAZOLE 20 MG 14 TABLETS ONE 14 DAY COURSE OF TREATMENT [Suspect]
     Active Substance: OMEPRAZOLE
     Indication: DYSPEPSIA
     Dosage: ?          QUANTITY:1 TABLET(S);?
     Route: 048
     Dates: start: 20191023, end: 20191030
  2. VITAMIN D 1000 IU [Concomitant]

REACTIONS (3)
  - Drug ineffective [None]
  - Product substitution issue [None]
  - Dyspepsia [None]

NARRATIVE: CASE EVENT DATE: 20191030
